APPROVED DRUG PRODUCT: OXYCODONE AND ACETAMINOPHEN
Active Ingredient: ACETAMINOPHEN; OXYCODONE HYDROCHLORIDE
Strength: 325MG;5MG
Dosage Form/Route: TABLET;ORAL
Application: A201278 | Product #001 | TE Code: AA
Applicant: RHODES PHARMACEUTICALS LP
Approved: Aug 28, 2014 | RLD: No | RS: No | Type: RX